FAERS Safety Report 11131396 (Version 1)
Quarter: 2015Q2

REPORT INFORMATION
  Report Type: Spontaneous
  Country: US (occurrence: US)
  Receive Date: 20150522
  Receipt Date: 20150522
  Transmission Date: 20150821
  Serious: Yes (Other)
  Sender: FDA-Public Use
  Company Number: US-B.I. PHARMACEUTICALS,INC./RIDGEFIELD-2015-BI-26449BP

PATIENT
  Age: 66 Year
  Sex: Female
  Weight: 87 kg

DRUGS (3)
  1. AGGRENOX [Suspect]
     Active Substance: ASPIRIN\DIPYRIDAMOLE
     Indication: CEREBROVASCULAR ACCIDENT PROPHYLAXIS
     Dosage: STRENGTH: 25 MG / 200 MG; DAILY DOSE: 25 MG/200 MG
     Route: 048
     Dates: start: 1995
  2. PRAVASTATIN [Concomitant]
     Active Substance: PRAVASTATIN\PRAVASTATIN SODIUM
     Indication: BLOOD CHOLESTEROL INCREASED
     Dosage: 20 MG
     Route: 048
  3. LISINOPRIL. [Concomitant]
     Active Substance: LISINOPRIL
     Indication: HYPERTENSION
     Dosage: 5 MG
     Route: 048
     Dates: start: 201502

REACTIONS (5)
  - Visual impairment [Recovered/Resolved]
  - Cerebrovascular accident [Recovered/Resolved]
  - Dizziness [Recovered/Resolved]
  - Blindness [Unknown]
  - Eye pain [Not Recovered/Not Resolved]

NARRATIVE: CASE EVENT DATE: 2009
